FAERS Safety Report 6208904-4 (Version None)
Quarter: 2009Q2

REPORT INFORMATION
  Report Type: 
  Country: None (occurrence: None)
  Receive Date: 20090529
  Receipt Date: 20090521
  Transmission Date: 20091009
  Serious: Yes (Other)
  Sender: FDA-Public Use
  Company Number: B0576247A

PATIENT
  Age: 53 Year
  Sex: Male

DRUGS (7)
  1. ZANTAC [Suspect]
     Indication: DRUG USE FOR UNKNOWN INDICATION
  2. CODEINE SUL TAB [Suspect]
     Indication: DRUG USE FOR UNKNOWN INDICATION
  3. LIPITOR [Suspect]
     Indication: DRUG USE FOR UNKNOWN INDICATION
  4. NORVASC [Suspect]
     Indication: DRUG USE FOR UNKNOWN INDICATION
  5. ATENOLOL [Suspect]
     Indication: DRUG USE FOR UNKNOWN INDICATION
  6. PLAQUENIL [Suspect]
     Indication: DRUG USE FOR UNKNOWN INDICATION
  7. SINEMET [Suspect]
     Indication: DRUG USE FOR UNKNOWN INDICATION

REACTIONS (3)
  - APHTHOUS STOMATITIS [None]
  - NIGHT BLINDNESS [None]
  - PHOTOPHOBIA [None]
